FAERS Safety Report 8529425-X (Version None)
Quarter: 2012Q3

REPORT INFORMATION
  Report Type: 
  Country: None (occurrence: None)
  Receive Date: 20120723
  Receipt Date: 20120712
  Transmission Date: 20120928
  Serious: Yes (Hospitalization)
  Sender: FDA-Public Use
  Company Number: CA-JNJFOC-20120705822

PATIENT
  Sex: Female

DRUGS (4)
  1. INVEGA SUSTENNA [Suspect]
     Indication: PRODUCT USED FOR UNKNOWN INDICATION
     Dosage: 100 MG IN FEB AND MARCH
     Route: 065
     Dates: start: 20120201
  2. INVEGA SUSTENNA [Suspect]
     Route: 065
     Dates: start: 20120503
  3. INVEGA SUSTENNA [Suspect]
     Route: 065
     Dates: start: 20120606
  4. INVEGA SUSTENNA [Suspect]
     Route: 065
     Dates: start: 20120301

REACTIONS (2)
  - GALLBLADDER OPERATION [None]
  - JAUNDICE [None]
